FAERS Safety Report 9619304 (Version 4)
Quarter: 2013Q4

REPORT INFORMATION
  Report Type: Report from Study
  Country: CA (occurrence: CA)
  Receive Date: 20131014
  Receipt Date: 20131126
  Transmission Date: 20140711
  Serious: Yes (Hospitalization, Other)
  Sender: FDA-Public Use
  Company Number: CA-ABBVIE-12P-028-0935472-00

PATIENT
  Age: 50 Year
  Sex: Female

DRUGS (1)
  1. HUMIRA [Suspect]
     Indication: PRODUCT USED FOR UNKNOWN INDICATION
     Route: 058
     Dates: start: 20110613

REACTIONS (6)
  - Procedural complication [Unknown]
  - Large intestine perforation [Unknown]
  - Ureteric perforation [Not Recovered/Not Resolved]
  - Post procedural complication [Unknown]
  - Incision site infection [Not Recovered/Not Resolved]
  - Central venous catheterisation [Unknown]
